FAERS Safety Report 10574070 (Version 1)
Quarter: 2014Q4

REPORT INFORMATION
  Report Type: Spontaneous
  Country: FR (occurrence: FR)
  Receive Date: 20141110
  Receipt Date: 20141110
  Transmission Date: 20150529
  Serious: Yes (Hospitalization)
  Sender: FDA-Public Use
  Company Number: FR-BRISTOL-MYERS SQUIBB COMPANY-21549456

PATIENT
  Age: 74 Year
  Sex: Female

DRUGS (9)
  1. STILNOX [Concomitant]
     Active Substance: ZOLPIDEM TARTRATE
  2. ABILIFY [Suspect]
     Active Substance: ARIPIPRAZOLE
     Indication: PSYCHOTIC DISORDER
     Route: 048
     Dates: end: 20140515
  3. DIGOXIN. [Concomitant]
     Active Substance: DIGOXIN
  4. ANAFRANIL [Concomitant]
     Active Substance: CLOMIPRAMINE HYDROCHLORIDE
  5. LOXAPAC [Interacting]
     Active Substance: LOXAPINE SUCCINATE
     Indication: PSYCHOTIC DISORDER
     Route: 048
     Dates: end: 20140520
  6. VESICARE [Concomitant]
     Active Substance: SOLIFENACIN SUCCINATE
  7. PREVISCAN [Concomitant]
     Active Substance: FLUINDIONE
  8. TERALITHE [Interacting]
     Active Substance: LITHIUM CARBONATE
     Indication: PSYCHOTIC DISORDER
     Route: 048
     Dates: end: 20140521
  9. TAHOR [Concomitant]
     Active Substance: ATORVASTATIN CALCIUM

REACTIONS (5)
  - Extrapyramidal disorder [Recovered/Resolved]
  - Off label use [Unknown]
  - Antipsychotic drug level increased [Recovered/Resolved]
  - Drug interaction [Unknown]
  - Confusional state [Recovered/Resolved]

NARRATIVE: CASE EVENT DATE: 2014
